FAERS Safety Report 8596314-4 (Version None)
Quarter: 2012Q3

REPORT INFORMATION
  Report Type: 
  Country: None (occurrence: None)
  Receive Date: 20120815
  Receipt Date: 20120809
  Transmission Date: 20120928
  Serious: Yes (Death)
  Sender: FDA-Public Use
  Company Number: IN-ELI_LILLY_AND_COMPANY-IN201208002836

PATIENT
  Age: 82 Year
  Sex: Male

DRUGS (3)
  1. FORTEO [Suspect]
     Indication: OSTEOPOROSIS
     Dosage: 20 UG, UNK
     Route: 058
  2. CALCIUM [Concomitant]
  3. VITAMIN D [Concomitant]

REACTIONS (1)
  - DEATH [None]
